FAERS Safety Report 5467916-9 (Version None)
Quarter: 2007Q3

REPORT INFORMATION
  Report Type: 
  Country: None (occurrence: None)
  Receive Date: 20070820
  Receipt Date: 20070502
  Transmission Date: 20080115
  Serious: No
  Sender: FDA-Public Use
  Company Number: WAES 0701USA03985

PATIENT
  Age: 71 Year
  Sex: Male

DRUGS (5)
  1. JANUVIA [Suspect]
     Indication: BLOOD GLUCOSE
     Dosage: 100 MG/DAILY/PO, DAILY/PO
     Route: 048
     Dates: start: 20070115, end: 20070117
  2. JANUVIA [Suspect]
     Indication: DIABETES MELLITUS
     Dosage: 100 MG/DAILY/PO, DAILY/PO
     Route: 048
     Dates: start: 20070115, end: 20070117
  3. JANUVIA [Suspect]
     Indication: BLOOD GLUCOSE
     Dosage: 100 MG/DAILY/PO, DAILY/PO
     Route: 048
     Dates: start: 20070118
  4. JANUVIA [Suspect]
     Indication: DIABETES MELLITUS
     Dosage: 100 MG/DAILY/PO, DAILY/PO
     Route: 048
     Dates: start: 20070118
  5. INSULIN [Concomitant]

REACTIONS (3)
  - DIABETES MELLITUS INADEQUATE CONTROL [None]
  - HYPOGLYCAEMIA [None]
  - WRONG TECHNIQUE IN DRUG USAGE PROCESS [None]
